FAERS Safety Report 13422023 (Version 1)
Quarter: 2017Q2

REPORT INFORMATION
  Report Type: Spontaneous
  Country: GB (occurrence: GB)
  Receive Date: 20170410
  Receipt Date: 20170410
  Transmission Date: 20170830
  Serious: Yes (Disabling, Other)
  Sender: FDA-Public Use
  Company Number: GB-SUN PHARMACEUTICAL INDUSTRIES LTD-2017RR-137338

PATIENT
  Age: 16 Year
  Sex: Male
  Weight: 89 kg

DRUGS (2)
  1. ISOTRETINOIN [Suspect]
     Active Substance: ISOTRETINOIN
     Indication: ACNE CYSTIC
     Dosage: 20 MG
     Route: 048
     Dates: start: 20131107
  2. ISOTRETINOIN [Suspect]
     Active Substance: ISOTRETINOIN
     Dosage: 60 MG
     Route: 048
     Dates: end: 20140701

REACTIONS (18)
  - Muscle atrophy [Not Recovered/Not Resolved]
  - Alcohol intolerance [Not Recovered/Not Resolved]
  - Back pain [Not Recovered/Not Resolved]
  - Sexual dysfunction [Not Recovered/Not Resolved]
  - Abnormal behaviour [Recovering/Resolving]
  - Pallor [Not Recovered/Not Resolved]
  - Stress [Recovering/Resolving]
  - Anxiety [Recovering/Resolving]
  - Joint crepitation [Not Recovered/Not Resolved]
  - Arthralgia [Not Recovered/Not Resolved]
  - Erectile dysfunction [Unknown]
  - Purging [Recovered/Resolved]
  - Exercise tolerance decreased [Not Recovered/Not Resolved]
  - Mental disorder [Unknown]
  - Suicidal ideation [Recovering/Resolving]
  - Depression [Recovering/Resolving]
  - Disturbance in attention [Recovering/Resolving]
  - Pharyngitis streptococcal [Recovered/Resolved]
